FAERS Safety Report 9198959 (Version 1)
Quarter: 2013Q1

REPORT INFORMATION
  Report Type: Spontaneous
  Country: US (occurrence: US)
  Receive Date: 20130329
  Receipt Date: 20130329
  Transmission Date: 20140127
  Serious: No
  Sender: FDA-Public Use
  Company Number: US-PFIZER INC-2013096411

PATIENT
  Age: 63 Year
  Sex: Male
  Weight: 109 kg

DRUGS (4)
  1. VIAGRA [Suspect]
     Indication: ERECTILE DYSFUNCTION
     Dosage: 50 MG, UNK
     Dates: start: 2012
  2. VIAGRA [Suspect]
     Dosage: 100 MG, UNK
     Dates: start: 2013
  3. SIMVASTATIN [Concomitant]
     Indication: BLOOD CHOLESTEROL ABNORMAL
     Dosage: UNK, 1X/DAY
  4. PROTONIX [Concomitant]
     Indication: GASTROOESOPHAGEAL REFLUX DISEASE
     Dosage: 40 MG, 1X/DAY

REACTIONS (1)
  - Drug ineffective [Unknown]
